FAERS Safety Report 8617722-9 (Version None)
Quarter: 2012Q3

REPORT INFORMATION
  Report Type: 
  Country: None (occurrence: None)
  Receive Date: 20120824
  Receipt Date: 20120125
  Transmission Date: 20120928
  Serious: No
  Sender: FDA-Public Use
  Company Number: US-ASTRAZENECA-2012SE00085

PATIENT
  Age: 69 Year
  Sex: Female

DRUGS (3)
  1. IPRATROPIUM BROMIDE [Suspect]
     Route: 065
  2. ALBUTEROL [Suspect]
     Route: 065
  3. SYMBICORT [Suspect]
     Dosage: UNKNOWN DOSE, TWO TIMES DAILY
     Route: 055

REACTIONS (4)
  - BRONCHITIS [None]
  - EMPHYSEMA [None]
  - DYSPNOEA [None]
  - TREMOR [None]
